FAERS Safety Report 9278240 (Version 2)
Quarter: 2014Q1

REPORT INFORMATION
  Report Type: Spontaneous
  Country: US (occurrence: US)
  Receive Date: 20130508
  Receipt Date: 20140220
  Transmission Date: 20141002
  Serious: No
  Sender: FDA-Public Use
  Company Number: US-B.I. PHARMACEUTICALS,INC./RIDGEFIELD-2013-BI-12852BP

PATIENT
  Sex: 0

DRUGS (1)
  1. PRADAXA [Suspect]
     Indication: PRODUCT USED FOR UNKNOWN INDICATION
     Route: 048

REACTIONS (6)
  - Epigastric discomfort [Unknown]
  - Gastrointestinal pain [Unknown]
  - Oesophageal discomfort [Unknown]
  - Burning sensation [Unknown]
  - Product quality issue [Unknown]
  - Product quality issue [Unknown]
